FAERS Safety Report 6846776-5 (Version None)
Quarter: 2010Q3

REPORT INFORMATION
  Report Type: 
  Country: None (occurrence: None)
  Receive Date: 20100715
  Receipt Date: 20070918
  Transmission Date: 20110219
  Serious: No
  Sender: FDA-Public Use
  Company Number: US-PFIZER INC-2007080308

PATIENT
  Age: 64 Year
  Sex: Female
  Weight: 98.6 kg

DRUGS (6)
  1. CHANTIX [Suspect]
     Indication: SMOKING CESSATION THERAPY
     Route: 048
     Dates: start: 20070901
  2. INSULIN [Concomitant]
  3. NEURONTIN [Concomitant]
  4. DOCUSATE SODIUM [Concomitant]
  5. LOVASTATIN [Concomitant]
  6. PRILOSEC [Concomitant]

REACTIONS (2)
  - ABDOMINAL PAIN UPPER [None]
  - DIARRHOEA [None]
